FAERS Safety Report 15616732 (Version 2)
Quarter: 2019Q1

REPORT INFORMATION
  Report Type: Spontaneous
  Country: JP (occurrence: JP)
  Receive Date: 20181114
  Receipt Date: 20190311
  Transmission Date: 20190417
  Serious: Yes (Hospitalization)
  Sender: FDA-Public Use
  Company Number: JP-PFIZER INC-2018466043

PATIENT
  Age: 67 Year
  Sex: Male

DRUGS (2)
  1. ACTEMRA [Concomitant]
     Active Substance: TOCILIZUMAB
     Dosage: UNK
     Route: 065
  2. CELECOX [Suspect]
     Active Substance: CELECOXIB
     Indication: RHEUMATIC DISORDER
     Dosage: UNK UNK, UNKNOWN FREQ.
     Route: 048
     Dates: end: 20181103

REACTIONS (2)
  - Collagen disorder [Unknown]
  - Urticaria [Recovering/Resolving]
